FAERS Safety Report 5642725-6 (Version None)
Quarter: 2008Q1

REPORT INFORMATION
  Report Type: 
  Country: None (occurrence: None)
  Receive Date: 20080227
  Receipt Date: 20080227
  Transmission Date: 20080703
  Serious: Yes (Hospitalization)
  Sender: FDA-Public Use
  Company Number: None

PATIENT
  Sex: Male
  Weight: 74.8435 kg

DRUGS (3)
  1. REGULAR INSULIN [Suspect]
     Indication: DIABETES MELLITUS
     Dosage: 45 UNITS BEFORE SLEEP (THERAPY DATES: PRIOR TO ADMISSION)
  2. ISOPHANE INSULIN [Suspect]
     Indication: DIABETES MELLITUS
     Dosage: 20 UNITS BEFORE SLEEP (THERAPY DATES: PRIOR TO ADMISSION)
  3. BP MED [Concomitant]

REACTIONS (2)
  - ALTERED STATE OF CONSCIOUSNESS [None]
  - DIABETIC COMPLICATION [None]
